FAERS Safety Report 23350748 (Version 1)
Quarter: 2023Q4

REPORT INFORMATION
  Report Type: Spontaneous
  Country: EG (occurrence: EG)
  Receive Date: 20231229
  Receipt Date: 20231229
  Transmission Date: 20240110
  Serious: Yes (Disabling, Other)
  Sender: FDA-Public Use
  Company Number: EG-HIKMA PHARMACEUTICALS-EG-H14001-23-68463

PATIENT
  Age: 60 Year
  Sex: Female
  Weight: 84 kg

DRUGS (2)
  1. CARBOPLATIN [Suspect]
     Active Substance: CARBOPLATIN
     Indication: Lung neoplasm malignant
     Dosage: 300 MILLIGRAM DAY, 3W
     Route: 041
     Dates: start: 20230903
  2. ETOPOSIDE [Suspect]
     Active Substance: ETOPOSIDE
     Indication: Lung neoplasm malignant
     Dosage: 180 MILLIGRAM, DAY 1, 2, 3, 3W
     Route: 041
     Dates: start: 20230903

REACTIONS (5)
  - Hemiparesis [Recovering/Resolving]
  - Neuropathy peripheral [Recovering/Resolving]
  - Cerebral small vessel ischaemic disease [Recovering/Resolving]
  - Walking disability [Unknown]
  - Movement disorder [Unknown]

NARRATIVE: CASE EVENT DATE: 20231112
